FAERS Safety Report 8476357-1 (Version None)
Quarter: 2012Q2

REPORT INFORMATION
  Report Type: 
  Country: None (occurrence: None)
  Receive Date: 20120628
  Receipt Date: 20120625
  Transmission Date: 20120825
  Serious: Yes (Death)
  Sender: FDA-Public Use
  Company Number: US-GILEAD-2012-0052521

PATIENT
  Sex: Female

DRUGS (13)
  1. PREDNISONE TAB [Concomitant]
     Indication: SYSTEMIC LUPUS ERYTHEMATOSUS
  2. DAPSONE [Concomitant]
     Indication: SYSTEMIC LUPUS ERYTHEMATOSUS
  3. FOLIC ACID [Concomitant]
     Indication: SYSTEMIC LUPUS ERYTHEMATOSUS
  4. METHOTREXATE [Concomitant]
     Indication: SYSTEMIC LUPUS ERYTHEMATOSUS
  5. HYDROCODONE BITARTRATE AND ACETAMINOPHEN [Concomitant]
     Indication: PAIN
  6. CELLCEPT [Concomitant]
     Indication: SYSTEMIC LUPUS ERYTHEMATOSUS
  7. DAPSONE [Concomitant]
     Indication: PAIN
  8. DILAUDID [Concomitant]
     Indication: PAIN
  9. AMLODIPINE [Concomitant]
     Indication: PULMONARY HYPERTENSION
  10. DOXEPIN [Concomitant]
     Indication: SLEEP DISORDER
  11. LETAIRIS [Suspect]
     Indication: PULMONARY HYPERTENSION
     Dosage: 10 MG, UNK
     Route: 048
     Dates: start: 20120101, end: 20120222
  12. LETAIRIS [Suspect]
     Indication: SYSTEMIC LUPUS ERYTHEMATOSUS
     Dosage: 5 UNK, UNK
     Route: 048
     Dates: start: 20111221, end: 20120101
  13. PLAQUENIL [Concomitant]
     Indication: SYSTEMIC LUPUS ERYTHEMATOSUS

REACTIONS (3)
  - PULMONARY EMBOLISM [None]
  - VENTRICULAR TACHYCARDIA [None]
  - RESPIRATORY FAILURE [None]
